FAERS Safety Report 15943198 (Version 4)
Quarter: 2025Q2

REPORT INFORMATION
  Report Type: Spontaneous
  Country: PL (occurrence: PL)
  Receive Date: 20190210
  Receipt Date: 20250526
  Transmission Date: 20250717
  Serious: Yes (Death, Hospitalization, Other)
  Sender: NOVARTIS
  Company Number: PHHY2019PL030299

PATIENT
  Age: 58 Year
  Sex: Male

DRUGS (8)
  1. BASILIXIMAB [Suspect]
     Active Substance: BASILIXIMAB
     Indication: Immunosuppression
     Route: 065
  2. CYCLOSPORINE [Suspect]
     Active Substance: CYCLOSPORINE
     Indication: Immunosuppression
     Dosage: 50 MG, QD (WITH GRADUAL DOSE ESCALATION)
     Route: 048
  3. MYCOPHENOLATE MOFETIL [Suspect]
     Active Substance: MYCOPHENOLATE MOFETIL
     Indication: Immunosuppression
     Route: 065
  4. PREDNISOLONE [Suspect]
     Active Substance: PREDNISOLONE
     Indication: Immunosuppression
     Route: 065
  5. THYMOCYTE IMMUNE GLOBULIN NOS [Suspect]
     Active Substance: THYMOCYTE IMMUNE GLOBULIN NOS
     Indication: Immunosuppressant drug therapy
     Route: 065
  6. THYMOCYTE IMMUNE GLOBULIN NOS [Suspect]
     Active Substance: THYMOCYTE IMMUNE GLOBULIN NOS
     Indication: Immunosuppression
  7. SIROLIMUS [Suspect]
     Active Substance: SIROLIMUS
     Indication: Immunosuppressant drug therapy
     Route: 065
  8. SIROLIMUS [Suspect]
     Active Substance: SIROLIMUS
     Indication: Immunosuppression
     Route: 065

REACTIONS (1)
  - Pneumonia [Fatal]
